FAERS Safety Report 20439578 (Version 1)
Quarter: 2022Q1

REPORT INFORMATION
  Report Type: Spontaneous
  Country: IT (occurrence: IT)
  Receive Date: 20220207
  Receipt Date: 20220207
  Transmission Date: 20220424
  Serious: Yes (Other)
  Sender: FDA-Public Use
  Company Number: IT-Stemline Therapeutics, Inc.-2022ST000019

PATIENT
  Age: 70 Year
  Sex: Male

DRUGS (1)
  1. ELZONRIS [Suspect]
     Active Substance: TAGRAXOFUSP-ERZS
     Indication: Blastic plasmacytoid dendritic cell neoplasia
     Dosage: 4 DOSAGES
     Route: 042

REACTIONS (5)
  - Transaminases increased [Unknown]
  - Weight increased [Unknown]
  - Coagulopathy [Unknown]
  - Leukocytosis [Unknown]
  - Blood lactate dehydrogenase increased [Unknown]
